FAERS Safety Report 18366175 (Version 2)
Quarter: 2020Q4

REPORT INFORMATION
  Report Type: Spontaneous
  Country: JP (occurrence: JP)
  Receive Date: 20201009
  Receipt Date: 20201105
  Transmission Date: 20210114
  Serious: Yes (Hospitalization)
  Sender: FDA-Public Use
  Company Number: JP-EISAI MEDICAL RESEARCH-EC-2020-081720

PATIENT
  Age: 83 Year
  Sex: Female

DRUGS (2)
  1. PACLITAXEL(ALBUMIN-BOUND) [Suspect]
     Active Substance: PACLITAXEL
     Indication: BREAST CANCER METASTATIC
     Dosage: DOSE AND FREQUENCY UNKNOWN
     Route: 065
  2. ERIBULIN [Suspect]
     Active Substance: ERIBULIN
     Indication: BREAST CANCER METASTATIC
     Dosage: DOSE UNKNOWN
     Route: 041

REACTIONS (2)
  - Nausea [Unknown]
  - Vomiting [Recovering/Resolving]
